FAERS Safety Report 8789609 (Version 1)
Quarter: 2012Q4

REPORT INFORMATION
  Report Type: Spontaneous
  Country: US (occurrence: None)
  Receive Date: 20120910
  Receipt Date: 20120910
  Transmission Date: 20130627
  Serious: Yes (Other)
  Sender: FDA-Public Use
  Company Number: None

PATIENT
  Age: 66 Year
  Sex: Male
  Weight: 113.4 kg

DRUGS (2)
  1. CRESTOR [Suspect]
     Indication: BLOOD CHOLESTEROL INCREASED
     Dosage: 10 mg 1 qd. o
     Route: 048
     Dates: start: 2006, end: 20120329
  2. CRESTOR [Suspect]
     Indication: DRUG SIDE EFFECT
     Dosage: 10 mg 1 qd. o
     Route: 048
     Dates: start: 2006, end: 20120329

REACTIONS (11)
  - Muscular weakness [None]
  - Fatigue [None]
  - Fall [None]
  - Asthenia [None]
  - Laceration [None]
  - Cellulitis [None]
  - Adverse reaction [None]
  - Rhabdomyolysis [None]
  - Disseminated intravascular coagulation [None]
  - Oedema peripheral [None]
  - Muscle atrophy [None]
